FAERS Safety Report 10767819 (Version 1)
Quarter: 2015Q1

REPORT INFORMATION
  Report Type: Spontaneous
  Country: US (occurrence: US)
  Receive Date: 20150205
  Receipt Date: 20150205
  Transmission Date: 20150721
  Serious: Yes (Death, Other)
  Sender: FDA-Public Use
  Company Number: US-GILEAD-2015-0135563

PATIENT
  Age: 83 Year
  Sex: Female

DRUGS (15)
  1. TRAMADOL [Concomitant]
     Active Substance: TRAMADOL
  2. OMEPRAZOLE. [Concomitant]
     Active Substance: OMEPRAZOLE
  3. WARFARIN [Concomitant]
     Active Substance: WARFARIN
  4. DIGOXIN. [Concomitant]
     Active Substance: DIGOXIN
  5. VERAPAMIL [Concomitant]
     Active Substance: VERAPAMIL HYDROCHLORIDE
  6. LETAIRIS [Suspect]
     Active Substance: AMBRISENTAN
     Indication: PULMONARY ARTERIAL HYPERTENSION
     Dosage: 10 MG, QD
     Route: 065
     Dates: start: 20130502, end: 20150122
  7. SYNTHROID [Concomitant]
     Active Substance: LEVOTHYROXINE SODIUM
  8. PULMICORT TURBUHALER [Concomitant]
     Active Substance: BUDESONIDE
  9. ADCIRCA [Concomitant]
     Active Substance: TADALAFIL
  10. LISINOPRIL. [Concomitant]
     Active Substance: LISINOPRIL
  11. AVASTIN [Concomitant]
     Active Substance: BEVACIZUMAB
  12. ARANESP [Concomitant]
     Active Substance: DARBEPOETIN ALFA
  13. ASPIRIN                            /00002701/ [Concomitant]
     Active Substance: ASPIRIN
  14. CELEBREX [Concomitant]
     Active Substance: CELECOXIB
  15. GABAPENTIN. [Concomitant]
     Active Substance: GABAPENTIN

REACTIONS (1)
  - Bone disorder [Fatal]
